FAERS Safety Report 10172541 (Version 1)
Quarter: 2014Q2

REPORT INFORMATION
  Report Type: Spontaneous
  Country: US (occurrence: US)
  Receive Date: 20140515
  Receipt Date: 20140515
  Transmission Date: 20141212
  Serious: No
  Sender: FDA-Public Use
  Company Number: US-009507513-1405USA002872

PATIENT
  Age: 23 Year
  Sex: Female

DRUGS (5)
  1. CLARITIN [Suspect]
     Indication: HYPERSENSITIVITY
     Dosage: UNK, UNKNOWN
     Route: 048
  2. CLARITIN [Suspect]
     Indication: EYE PRURITUS
  3. CLARITIN [Suspect]
     Indication: ORAL PRURITUS
  4. CLARITIN [Suspect]
     Indication: NASAL DISCOMFORT
  5. CLARITIN [Suspect]
     Indication: ASPIRATION

REACTIONS (1)
  - Drug ineffective [Unknown]
